FAERS Safety Report 6108879-2 (Version None)
Quarter: 2009Q1

REPORT INFORMATION
  Report Type: 
  Country: None (occurrence: None)
  Receive Date: 20090306
  Receipt Date: 20090226
  Transmission Date: 20090719
  Serious: Yes (Hospitalization, Other)
  Sender: FDA-Public Use
  Company Number: 2009S1000076

PATIENT
  Age: 42 Year
  Sex: Female

DRUGS (1)
  1. ACITRETIN [Suspect]
     Indication: PSORIASIS
     Dosage: 600 MG; X1; PO, 30 MG; QD; PO
     Route: 048

REACTIONS (6)
  - ACUTE HEPATIC FAILURE [None]
  - BLOOD CREATINE PHOSPHOKINASE INCREASED [None]
  - ENCEPHALOPATHY [None]
  - IMPULSIVE BEHAVIOUR [None]
  - INTENTIONAL OVERDOSE [None]
  - RENAL IMPAIRMENT [None]
